FAERS Safety Report 21023043 (Version 15)
Quarter: 2024Q1

REPORT INFORMATION
  Report Type: Spontaneous
  Country: US (occurrence: US)
  Receive Date: 20220629
  Receipt Date: 20240213
  Transmission Date: 20240410
  Serious: Yes (Other)
  Sender: FDA-Public Use
  Company Number: US-PFIZER INC-PV202200010993

PATIENT
  Age: 67 Year
  Sex: Female
  Weight: 102.49 kg

DRUGS (3)
  1. IBRANCE [Suspect]
     Active Substance: PALBOCICLIB
     Indication: Breast cancer female
     Dosage: 3 WEEKS ON AND 1 WEEK OFF
  2. IBRANCE [Suspect]
     Active Substance: PALBOCICLIB
     Dosage: TAKE ONE A DAY FOR 3 WEEKS, ONE WEEK DO NOT TAKE
  3. IBRANCE [Suspect]
     Active Substance: PALBOCICLIB
     Dosage: 125 MG
     Route: 048

REACTIONS (20)
  - Coma [Unknown]
  - Pneumonia [Unknown]
  - Pleural effusion [Unknown]
  - COVID-19 [Unknown]
  - Chronic obstructive pulmonary disease [Unknown]
  - Neoplasm progression [Not Recovered/Not Resolved]
  - Poor quality product administered [Unknown]
  - Product dose omission in error [Unknown]
  - Product storage error [Unknown]
  - Neoplasm recurrence [Unknown]
  - Dyspnoea [Unknown]
  - Diarrhoea [Not Recovered/Not Resolved]
  - Malaise [Unknown]
  - Nausea [Unknown]
  - Asthenia [Unknown]
  - Fatigue [Unknown]
  - Urinary tract infection [Unknown]
  - Anaemia [Unknown]
  - Tumour marker increased [Not Recovered/Not Resolved]
  - Amnesia [Unknown]

NARRATIVE: CASE EVENT DATE: 20190101
